FAERS Safety Report 26168399 (Version 1)
Quarter: 2025Q4

REPORT INFORMATION
  Report Type: Spontaneous
  Country: EU (occurrence: EU)
  Receive Date: 20251217
  Receipt Date: 20251217
  Transmission Date: 20260117
  Serious: Yes (Other)
  Sender: TEVA
  Company Number: None

PATIENT
  Age: 55 Year
  Sex: Female

DRUGS (18)
  1. ROSUVASTATIN [Suspect]
     Active Substance: ROSUVASTATIN
     Indication: Cerebrovascular accident
     Dosage: DOSE INCREASED IN 2025
     Route: 065
     Dates: start: 20200201, end: 202511
  2. ACETAMINOPHEN [Concomitant]
     Active Substance: ACETAMINOPHEN
     Indication: Product used for unknown indication
     Dosage: 2X3TV
     Route: 065
     Dates: start: 20190523, end: 20251117
  3. CALCIUM CARBONATE\CHOLECALCIFEROL [Concomitant]
     Active Substance: CALCIUM CARBONATE\CHOLECALCIFEROL
     Indication: Product used for unknown indication
     Dosage: 1:14 P.M. + 1:20 P.M. TV
     Route: 065
     Dates: start: 20231201
  4. PARAFLEX [Concomitant]
     Active Substance: CHLORZOXAZONE
     Indication: Product used for unknown indication
     Dosage: 1 X 3-4 TIMES A DAY
     Route: 065
     Dates: start: 20191127
  5. ASPIRIN [Concomitant]
     Active Substance: ASPIRIN
     Indication: Product used for unknown indication
     Dosage: 1X1TV
     Route: 065
     Dates: start: 20181127
  6. LANTUS SOLOSTAR [Concomitant]
     Active Substance: INSULIN GLARGINE
     Indication: Product used for unknown indication
     Dosage: SOLUTION FOR INJECTION IN PRE-FILLED PEN
     Route: 065
     Dates: start: 20240813
  7. AMITRIPTYLINE [Concomitant]
     Active Substance: AMITRIPTYLINE
     Indication: Product used for unknown indication
     Dosage: 2TNTV
     Route: 065
     Dates: start: 20200219, end: 20251118
  8. NOVORAPID [Concomitant]
     Active Substance: INSULIN ASPART
     Indication: Product used for unknown indication
     Dosage: 3:00PM+3:00PM+3:00PMTV, SOLUTION FOR INJECTION IN PRE-FILLED PEN
     Route: 065
     Dates: start: 20231205, end: 20251121
  9. NOVORAPID [Concomitant]
     Active Substance: INSULIN ASPART
     Indication: Product used for unknown indication
     Route: 065
     Dates: start: 20180503
  10. FLUARIX NOS [Concomitant]
     Active Substance: INFLUENZA VIRUS VACCINE
     Indication: Product used for unknown indication
     Dosage: TIME INTERVAL: TOTAL: 0.5 END,
     Route: 065
     Dates: start: 20251022
  11. FOLVIDON [Concomitant]
     Indication: Product used for unknown indication
     Route: 065
     Dates: start: 20221220, end: 20251113
  12. GABAPENTIN [Concomitant]
     Active Substance: GABAPENTIN
     Indication: Product used for unknown indication
     Dosage: 1X3TV
     Route: 065
     Dates: start: 20200220, end: 20251120
  13. Comirnaty [Concomitant]
     Indication: Product used for unknown indication
     Dosage: TIME INTERVAL: TOTAL: COMIRNATY LP.8.1
     Route: 065
     Dates: start: 20251022
  14. ALENDRONATE SODIUM [Concomitant]
     Active Substance: ALENDRONATE SODIUM
     Indication: Product used for unknown indication
     Dosage: 1VAR7DTV, WEEKLY TABLET
     Route: 065
     Dates: start: 20231205
  15. Furosemid Medical Valley [Concomitant]
     Indication: Product used for unknown indication
     Dosage: TIME INTERVAL: 1 AS NECESSARY: 1X1VBTV
     Route: 065
     Dates: start: 20240321
  16. VENLAFAXINE [Concomitant]
     Active Substance: VENLAFAXINE HYDROCHLORIDE
     Indication: Product used for unknown indication
     Dosage: 2X1TV
     Route: 065
     Dates: start: 20231030, end: 20251119
  17. CYANOCOBALAMIN [Concomitant]
     Active Substance: CYANOCOBALAMIN
     Indication: Product used for unknown indication
     Dosage: 1WAS2D
     Route: 065
     Dates: start: 20181129
  18. METOCLOPRAMIDE [Concomitant]
     Active Substance: METOCLOPRAMIDE
     Indication: Product used for unknown indication
     Dosage: TIME INTERVAL: AS NECESSARY: 1 TABLET TWICE A DAY, MAX 3/DAY
     Route: 065
     Dates: start: 20230829

REACTIONS (3)
  - Rhabdomyolysis [Not Recovered/Not Resolved]
  - Acute kidney injury [Not Recovered/Not Resolved]
  - Gait inability [Not Recovered/Not Resolved]

NARRATIVE: CASE EVENT DATE: 20251113
